FAERS Safety Report 5365005-5 (Version None)
Quarter: 2007Q2

REPORT INFORMATION
  Report Type: 
  Country: None (occurrence: None)
  Receive Date: 20070530
  Receipt Date: 20070125
  Transmission Date: 20071010
  Serious: No
  Sender: FDA-Public Use
  Company Number: 2007PV029095

PATIENT
  Age: 73 Year
  Sex: Male

DRUGS (2)
  1. BYETTA [Suspect]
     Indication: DIABETES MELLITUS NON-INSULIN-DEPENDENT
     Dosage: 10 MCG; BID; SC, 5 MCG; BID; SC
     Route: 058
     Dates: start: 20060101, end: 20060101
  2. AMARYL [Suspect]
     Dosage: 1.5 MG; HS; PO, 1.0 MG; QAM; PO
     Route: 048

REACTIONS (7)
  - BLOOD GLUCOSE DECREASED [None]
  - EARLY SATIETY [None]
  - FATIGUE [None]
  - NERVOUSNESS [None]
  - PERIPHERAL COLDNESS [None]
  - TREMOR [None]
  - VISUAL ACUITY REDUCED [None]
